FAERS Safety Report 5782098-1 (Version None)
Quarter: 2008Q2

REPORT INFORMATION
  Report Type: 
  Country: None (occurrence: None)
  Receive Date: 20080623
  Receipt Date: 20080610
  Transmission Date: 20081010
  Serious: Yes (Other)
  Sender: FDA-Public Use
  Company Number: NO-ROCHE-567709

PATIENT
  Sex: Male

DRUGS (31)
  1. VALIUM [Suspect]
     Indication: ASPERGER'S DISORDER
     Route: 048
     Dates: start: 19990101
  2. DIAZEPAM [Suspect]
     Indication: ASPERGER'S DISORDER
     Route: 048
     Dates: start: 19990101
  3. VIVAL [Suspect]
     Indication: ASPERGER'S DISORDER
     Route: 048
     Dates: start: 19990101
  4. ALOPAM [Suspect]
     Indication: DRUG USE FOR UNKNOWN INDICATION
     Route: 065
     Dates: start: 19990101
  5. SOBRIL [Suspect]
     Indication: DRUG USE FOR UNKNOWN INDICATION
     Route: 065
     Dates: start: 19990101
  6. NITRAZEPAM [Suspect]
     Indication: DRUG USE FOR UNKNOWN INDICATION
     Route: 065
     Dates: start: 19990101
  7. SOMADRIL [Suspect]
     Indication: DRUG USE FOR UNKNOWN INDICATION
     Route: 065
     Dates: start: 19990101
  8. FONTEX [Suspect]
     Indication: DRUG USE FOR UNKNOWN INDICATION
     Route: 065
     Dates: start: 19990101
  9. TRUXAL [Suspect]
     Indication: DRUG USE FOR UNKNOWN INDICATION
     Route: 065
     Dates: start: 19990101
  10. BUSPAR [Suspect]
     Indication: DRUG USE FOR UNKNOWN INDICATION
     Route: 065
     Dates: start: 19990101
  11. TRILAFON [Suspect]
     Indication: DRUG USE FOR UNKNOWN INDICATION
     Route: 065
     Dates: start: 19990101
  12. PARALGIN FORTE [Suspect]
     Indication: DRUG USE FOR UNKNOWN INDICATION
     Route: 065
     Dates: start: 19990101
  13. PARALGIN FORTE [Suspect]
     Route: 065
     Dates: start: 19990101
  14. ZOLOFT [Suspect]
     Indication: DRUG USE FOR UNKNOWN INDICATION
     Route: 065
     Dates: start: 19990101
  15. SOLVIPECT COMP. [Suspect]
     Indication: DRUG USE FOR UNKNOWN INDICATION
     Route: 065
     Dates: start: 19990101
  16. SOLVIPECT COMP. [Suspect]
     Route: 065
     Dates: start: 19990101
  17. SOLVIPECT COMP. [Suspect]
     Route: 065
     Dates: start: 19990101
  18. ZOPICLONE [Suspect]
     Indication: DRUG USE FOR UNKNOWN INDICATION
     Route: 065
     Dates: start: 19990101
  19. ZOLPIDEM [Suspect]
     Indication: DRUG USE FOR UNKNOWN INDICATION
     Route: 065
     Dates: start: 19990101
  20. BREXIDOL [Suspect]
     Indication: DRUG USE FOR UNKNOWN INDICATION
     Route: 065
     Dates: start: 19990101
  21. VALLERGAN [Concomitant]
  22. ZYRTEC [Concomitant]
  23. DESLORATADINE [Concomitant]
  24. NOZINAN [Concomitant]
  25. FLUTIDE [Concomitant]
  26. VENTOLIN [Concomitant]
  27. SERETIDE [Concomitant]
  28. SERETIDE [Concomitant]
  29. BRONKYL [Concomitant]
  30. SOLVIPECT [Concomitant]
  31. SOLVIPECT [Concomitant]

REACTIONS (14)
  - AGGRESSION [None]
  - ANXIETY [None]
  - APATHY [None]
  - CIRCADIAN RHYTHM SLEEP DISORDER [None]
  - COMPULSIONS [None]
  - DRUG DEPENDENCE [None]
  - DYSGEUSIA [None]
  - EAR DISCOMFORT [None]
  - HYPERHIDROSIS [None]
  - MOOD SWINGS [None]
  - MYALGIA [None]
  - SEXUAL DYSFUNCTION [None]
  - TREMOR [None]
  - WEIGHT INCREASED [None]
